FAERS Safety Report 7025499-6 (Version None)
Quarter: 2010Q4

REPORT INFORMATION
  Report Type: 
  Country: None (occurrence: None)
  Receive Date: 20101001
  Receipt Date: 20100924
  Transmission Date: 20110411
  Serious: Yes (Hospitalization)
  Sender: FDA-Public Use
  Company Number: US-AMGEN-KDL437515

PATIENT
  Sex: Male
  Weight: 89.9 kg

DRUGS (1)
  1. ENBREL [Suspect]
     Indication: RHEUMATOID ARTHRITIS
     Route: 058
     Dates: start: 20060301

REACTIONS (4)
  - INJECTION SITE PAIN [None]
  - INTERVERTEBRAL DISC DEGENERATION [None]
  - SPINAL COLUMN STENOSIS [None]
  - SPONDYLOLISTHESIS [None]
